FAERS Safety Report 21289819 (Version 1)
Quarter: 2022Q3

REPORT INFORMATION
  Report Type: Spontaneous
  Country: CN (occurrence: CN)
  Receive Date: 20220902
  Receipt Date: 20220902
  Transmission Date: 20221026
  Serious: Yes (Other)
  Sender: FDA-Public Use
  Company Number: None

PATIENT
  Age: 51 Year
  Sex: Female
  Weight: 62 kg

DRUGS (8)
  1. CYCLOPHOSPHAMIDE [Suspect]
     Active Substance: CYCLOPHOSPHAMIDE
     Indication: Invasive ductal breast carcinoma
     Dosage: FIRST EC REGIMEN CHEMOTHERAPY, INTRA-PUMP INJECTION, 0.9 G, QD
     Route: 050
     Dates: start: 20220621
  2. CYCLOPHOSPHAMIDE [Suspect]
     Active Substance: CYCLOPHOSPHAMIDE
     Indication: Hormone receptor positive breast cancer
     Dosage: SECOND EC REGIMEN CHEMOTHERAPY, INTRA-PUMP INJECTION, QD
     Route: 050
     Dates: start: 20220712
  3. CYCLOPHOSPHAMIDE [Suspect]
     Active Substance: CYCLOPHOSPHAMIDE
     Dosage: THIRD EC REGIMEN CHEMOTHERAPY, INTRA-PUMP INJECTION, 0.9 G, QD, DILUTED WITH (NS) SODIUM CHLORIDE 50
     Route: 050
     Dates: start: 20220802, end: 20220802
  4. SODIUM CHLORIDE [Suspect]
     Active Substance: SODIUM CHLORIDE
     Indication: Medication dilution
     Dosage: THIRD EC REGIMEN CHEMOTHERAPY, INTRA-PUMP INJECTION, 50 ML, QD, DILUTED WITH CYCLOPHOSPHAMIDE
     Route: 050
     Dates: start: 20220802, end: 20220802
  5. SODIUM CHLORIDE [Suspect]
     Active Substance: SODIUM CHLORIDE
     Dosage: THIRD EC REGIMEN CHEMOTHERAPY, 250 ML, QD, DILUTED WITH EPIRUBICIN HYDROCHLORIDE
     Route: 041
     Dates: start: 20220802, end: 20220802
  6. EPIRUBICIN [Suspect]
     Active Substance: EPIRUBICIN
     Indication: Invasive ductal breast carcinoma
     Dosage: FIRST EC REGIMEN CHEMOTHERAPY, 135 MG, QD
     Route: 041
     Dates: start: 20220621
  7. EPIRUBICIN [Suspect]
     Active Substance: EPIRUBICIN
     Indication: Hormone receptor positive breast cancer
     Dosage: SECOND EC REGIMEN CHEMOTHERAPY, QD
     Route: 041
     Dates: start: 20220712
  8. EPIRUBICIN [Suspect]
     Active Substance: EPIRUBICIN
     Dosage: THIRD EC REGIMEN CHEMOTHERAPY, 135 MG, QD, DILUTED WITH (NS) SODIUM CHLORIDE 250 ML
     Route: 041
     Dates: start: 20220802, end: 20220802

REACTIONS (1)
  - Drug-induced liver injury [Recovering/Resolving]

NARRATIVE: CASE EVENT DATE: 20220819
